FAERS Safety Report 10109274 (Version 2)
Quarter: 2014Q3

REPORT INFORMATION
  Report Type: Spontaneous
  Country: US (occurrence: None)
  Receive Date: 20140421
  Receipt Date: 20140722
  Transmission Date: 20150326
  Serious: No
  Sender: FDA-Public Use
  Company Number: AEGR000310

PATIENT
  Age: 59 Year
  Sex: Male
  Weight: 70.7 kg

DRUGS (9)
  1. HYOSCYAMINE (HYOSCYAMINE) [Concomitant]
     Active Substance: HYOSCYAMINE
  2. SOTALOL (SOTALOL) [Concomitant]
     Active Substance: SOTALOL
  3. JUXTAPID [Suspect]
     Active Substance: LOMITAPIDE MESYLATE
     Indication: TYPE IIA HYPERLIPIDAEMIA
     Route: 048
     Dates: start: 201312, end: 201401
  4. ASPIRIN (ACETYLSALICYLIC ACID) [Concomitant]
     Active Substance: ASPIRIN
  5. PRAVASTATIN [Concomitant]
     Active Substance: PRAVASTATIN\PRAVASTATIN SODIUM
  6. ATENOLOL (ATENOLOL) [Concomitant]
     Active Substance: ATENOLOL
  7. METOPROLOL (METOPROLOL) [Concomitant]
     Active Substance: METOPROLOL
  8. VITAMIN D3 [Concomitant]
     Active Substance: CHOLECALCIFEROL
  9. ALDACTONE [Concomitant]
     Active Substance: SPIRONOLACTONE

REACTIONS (3)
  - Rash [None]
  - Pruritus [None]
  - Arthralgia [None]
